FAERS Safety Report 8510008-2 (Version None)
Quarter: 2012Q2

REPORT INFORMATION
  Report Type: 
  Country: None (occurrence: None)
  Receive Date: 20120405
  Receipt Date: 20090721
  Transmission Date: 20120825
  Serious: Yes (Hospitalization)
  Sender: FDA-Public Use
  Company Number: PHEH2009US06610

PATIENT
  Age: 80 Year
  Sex: Male

DRUGS (11)
  1. PRAVASTATIN [Concomitant]
  2. POTASSIUM CHLORIDE [Concomitant]
  3. FINASTERIDE [Concomitant]
  4. REQUIP [Concomitant]
  5. GLYCOPYRROLATE [Concomitant]
  6. RECLAST [Suspect]
     Indication: OSTEOPOROSIS
     Dosage: 5 MG ONCE YEARLY, IV INFUSION
     Dates: start: 20090618, end: 20090618
  7. FUROSEMIDE (FUROSEMIDE) [Concomitant]
  8. GLYBURIDE [Concomitant]
  9. ASPIRIN [Concomitant]
  10. ERYTHROMYCIN [Concomitant]
  11. METFFORMIN HYDROCHLORIDE [Concomitant]

REACTIONS (4)
  - BONE PAIN [None]
  - ARTHRALGIA [None]
  - MUSCULOSKELETAL PAIN [None]
  - BACK PAIN [None]
